FAERS Safety Report 12229721 (Version 1)
Quarter: 2016Q1

REPORT INFORMATION
  Report Type: Spontaneous
  Country: US (occurrence: None)
  Receive Date: 20160331
  Receipt Date: 20160331
  Transmission Date: 20160526
  Serious: Yes (Disabling)
  Sender: FDA-Public Use
  Company Number: None

PATIENT
  Age: 67 Year
  Sex: Female
  Weight: 65.77 kg

DRUGS (15)
  1. LANTUS [Suspect]
     Active Substance: INSULIN GLARGINE
     Indication: TYPE 1 DIABETES MELLITUS
     Route: 058
     Dates: start: 20160317
  2. MINERALS [Concomitant]
     Active Substance: MINERALS
  3. HAWTHORNE BERRY [Concomitant]
  4. HERBS [Concomitant]
     Active Substance: HERBALS
  5. CAMGZNC [Concomitant]
  6. VITAMIN B12 [Concomitant]
     Active Substance: CYANOCOBALAMIN
  7. LEVOTHYROXIN [Concomitant]
     Active Substance: LEVOTHYROXINE
  8. VITAMIN E [Concomitant]
     Active Substance: .ALPHA.-TOCOPHEROL
  9. B-6 [Concomitant]
  10. CAYENNE PEPPER [Concomitant]
     Active Substance: CAPSICUM
  11. TURMERIC [Concomitant]
     Active Substance: TURMERIC
  12. APIDRA [Concomitant]
     Active Substance: INSULIN GLULISINE
  13. MULTIPLE VITAMINS [Concomitant]
     Active Substance: VITAMINS
  14. VITAMIN D3 [Concomitant]
     Active Substance: CHOLECALCIFEROL
  15. BENADRYL [Concomitant]
     Active Substance: DIPHENHYDRAMINE HYDROCHLORIDE

REACTIONS (3)
  - Prescribed underdose [None]
  - Product quality issue [None]
  - Unevaluable event [None]

NARRATIVE: CASE EVENT DATE: 20160316
